FAERS Safety Report 6469707-9 (Version None)
Quarter: 2009Q4

REPORT INFORMATION
  Report Type: 
  Country: None (occurrence: None)
  Receive Date: 20091203
  Receipt Date: 20090727
  Transmission Date: 20100525
  Serious: No
  Sender: FDA-Public Use
  Company Number: US-ELI_LILLY_AND_COMPANY-US200710002499

PATIENT
  Sex: Female

DRUGS (13)
  1. BYETTA [Suspect]
     Indication: TYPE 2 DIABETES MELLITUS
     Dosage: 5 UG, 2/D
     Route: 058
     Dates: start: 20060621, end: 20060817
  2. BYETTA [Suspect]
     Dosage: 10 UG, DAILY (1/D)
     Route: 058
     Dates: start: 20060817
  3. BENICAR HCT [Concomitant]
     Dosage: UNK, DAILY (1/D)
     Route: 048
     Dates: start: 20050706, end: 20090706
  4. CYMBALTA [Concomitant]
     Dosage: 30 MG, DAILY (1/D)
     Dates: start: 20050706, end: 20080903
  5. GABAPENTIN [Concomitant]
     Dosage: 600 MG, EACH EVENING
     Dates: start: 20051230, end: 20080903
  6. GLYBURIDE [Concomitant]
     Dosage: 2.5 MG, DAILY (1/D)
     Dates: start: 20050706, end: 20061101
  7. LIPITOR [Concomitant]
     Dosage: 10 MG, DAILY (1/D)
     Dates: start: 20060216, end: 20060925
  8. NITROFURANTOIN [Concomitant]
     Dates: start: 20060210, end: 20080903
  9. PLAVIX [Concomitant]
     Dates: start: 20050706, end: 20080313
  10. TRICOR [Concomitant]
     Dosage: 145 MG, UNK
     Dates: start: 20060925, end: 20080313
  11. VERAPAMIL [Concomitant]
     Dosage: 240 MG, DAILY (1/D)
     Route: 048
     Dates: start: 20060210
  12. ASPIRIN                                 /SCH/ [Concomitant]
     Dosage: 81 MG, DAILY (1/D)
     Dates: start: 20050706
  13. CHOLESTYRAMINE [Concomitant]
     Dates: start: 20060517

REACTIONS (8)
  - BENIGN NEOPLASM OF THYROID GLAND [None]
  - BLOOD GLUCOSE ABNORMAL [None]
  - DIARRHOEA [None]
  - DYSGEUSIA [None]
  - FLATULENCE [None]
  - INSOMNIA [None]
  - LIPOMA [None]
  - NAUSEA [None]
